FAERS Safety Report 24070049 (Version 1)
Quarter: 2024Q3

REPORT INFORMATION
  Report Type: Report from Study
  Country: CN (occurrence: CN)
  Receive Date: 20240710
  Receipt Date: 20240710
  Transmission Date: 20241017
  Serious: No
  Sender: ROCHE
  Company Number: CN-ROCHE-3562630

PATIENT
  Age: 69 Year
  Sex: Male

DRUGS (1)
  1. FARICIMAB [Suspect]
     Active Substance: FARICIMAB
     Indication: Diabetic retinal oedema
     Dosage: INJECTION, 0.05 ML (6 MG)
     Route: 050
     Dates: start: 20240419

REACTIONS (2)
  - Drug ineffective [Unknown]
  - Oedema [Unknown]

NARRATIVE: CASE EVENT DATE: 20240419
